FAERS Safety Report 7462181-5 (Version None)
Quarter: 2011Q2

REPORT INFORMATION
  Report Type: 
  Country: None (occurrence: None)
  Receive Date: 20110506
  Receipt Date: 20101209
  Transmission Date: 20111010
  Serious: Yes (Hospitalization, Other)
  Sender: FDA-Public Use
  Company Number: US-BAYER-201027934NA

PATIENT
  Age: 19 Year
  Sex: Female
  Weight: 64 kg

DRUGS (2)
  1. ZYRTEC [Concomitant]
  2. YAZ [Suspect]
     Indication: PREMENSTRUAL SYNDROME
     Dosage: UNK
     Route: 048
     Dates: start: 20080101, end: 20080801

REACTIONS (2)
  - PULMONARY EMBOLISM [None]
  - LOBAR PNEUMONIA [None]
